FAERS Safety Report 20692606 (Version 6)
Quarter: 2023Q1

REPORT INFORMATION
  Report Type: Spontaneous
  Country: US (occurrence: US)
  Receive Date: 20220409
  Receipt Date: 20230323
  Transmission Date: 20230417
  Serious: Yes (Other)
  Sender: FDA-Public Use
  Company Number: US-BRISTOL-MYERS SQUIBB COMPANY-2022-016691

PATIENT
  Age: 57 Year
  Sex: Female

DRUGS (5)
  1. ORENCIA [Suspect]
     Active Substance: ABATACEPT
     Indication: Rheumatoid arthritis
     Route: 058
     Dates: start: 202201
  2. ORENCIA [Suspect]
     Active Substance: ABATACEPT
     Route: 058
     Dates: start: 202211
  3. ORENCIA [Suspect]
     Active Substance: ABATACEPT
     Dosage: ONGOING, EVERY WEEK
     Route: 058
     Dates: start: 202111
  4. ORENCIA [Suspect]
     Active Substance: ABATACEPT
     Indication: Rheumatoid arthritis
     Route: 042
     Dates: start: 202201
  5. HIZENTRA [Concomitant]
     Active Substance: HUMAN IMMUNOGLOBULIN G
     Indication: Immunodeficiency common variable
     Dosage: TOTAL DOSE:7 GM

REACTIONS (5)
  - Joint injury [Unknown]
  - Weight decreased [Unknown]
  - Joint swelling [Unknown]
  - Decreased appetite [Unknown]
  - Arthralgia [Unknown]
